FAERS Safety Report 18753783 (Version 4)
Quarter: 2021Q3

REPORT INFORMATION
  Report Type: Report from Study
  Country: None (occurrence: PA)
  Receive Date: 20210118
  Receipt Date: 20210928
  Transmission Date: 20211014
  Serious: Yes (Other)
  Sender: FDA-Public Use
  Company Number: PA-ABBVIE-21K-125-3731608-00

PATIENT
  Age: 49 Year
  Sex: Female
  Weight: 58 kg

DRUGS (6)
  1. HUMIRA [Suspect]
     Active Substance: ADALIMUMAB
     Indication: RHEUMATOID ARTHRITIS
     Route: 058
     Dates: start: 20170726, end: 20210901
  2. FOLIC ACID. [Concomitant]
     Active Substance: FOLIC ACID
     Indication: PRODUCT USED FOR UNKNOWN INDICATION
  3. CIPROFLOXACIN. [Suspect]
     Active Substance: CIPROFLOXACIN
     Indication: PRODUCT USED FOR UNKNOWN INDICATION
     Route: 065
     Dates: start: 2021
  4. EUTIROX [Concomitant]
     Active Substance: LEVOTHYROXINE SODIUM
     Indication: PRODUCT USED FOR UNKNOWN INDICATION
  5. HUMIRA [Suspect]
     Active Substance: ADALIMUMAB
     Indication: RHEUMATOID ARTHRITIS
     Route: 058
     Dates: start: 20170726, end: 20200715
  6. METHOTREXATE. [Concomitant]
     Active Substance: METHOTREXATE
     Indication: PRODUCT USED FOR UNKNOWN INDICATION

REACTIONS (42)
  - Blood calcium decreased [Unknown]
  - Dyspnoea [Not Recovered/Not Resolved]
  - Ear disorder [Unknown]
  - Urinary tract infection [Not Recovered/Not Resolved]
  - Vomiting [Not Recovered/Not Resolved]
  - Headache [Recovering/Resolving]
  - Menopause [Not Recovered/Not Resolved]
  - Dysstasia [Not Recovered/Not Resolved]
  - Abdominal pain [Not Recovered/Not Resolved]
  - Dizziness [Not Recovered/Not Resolved]
  - Vein disorder [Not Recovered/Not Resolved]
  - Sleep disorder [Not Recovered/Not Resolved]
  - Weight increased [Recovering/Resolving]
  - Pain in extremity [Not Recovered/Not Resolved]
  - Back pain [Recovering/Resolving]
  - Peripheral swelling [Recovering/Resolving]
  - Headache [Recovered/Resolved]
  - Spinal pain [Not Recovered/Not Resolved]
  - Hormone level abnormal [Not Recovered/Not Resolved]
  - Visual impairment [Recovering/Resolving]
  - Thyroid cancer [Recovering/Resolving]
  - Malaise [Unknown]
  - Collagen disorder [Not Recovered/Not Resolved]
  - Blood oestrogen decreased [Not Recovered/Not Resolved]
  - Gait disturbance [Recovered/Resolved]
  - Chest pain [Recovering/Resolving]
  - Hypertension [Recovering/Resolving]
  - Abdominal distension [Recovering/Resolving]
  - Gait disturbance [Not Recovered/Not Resolved]
  - Furuncle [Recovering/Resolving]
  - Rheumatoid arthritis [Recovering/Resolving]
  - Dizziness [Recovered/Resolved]
  - Hypoaesthesia [Recovering/Resolving]
  - Erythema [Recovering/Resolving]
  - Asthenia [Unknown]
  - Dysuria [Not Recovered/Not Resolved]
  - Urinary retention [Not Recovered/Not Resolved]
  - Blood potassium decreased [Unknown]
  - Dysgeusia [Recovering/Resolving]
  - Dizziness [Recovered/Resolved]
  - Inflammation [Not Recovered/Not Resolved]
  - Urinary retention [Not Recovered/Not Resolved]

NARRATIVE: CASE EVENT DATE: 2020
